FAERS Safety Report 6166728-0 (Version None)
Quarter: 2009Q2

REPORT INFORMATION
  Report Type: 
  Country: None (occurrence: None)
  Receive Date: 20090424
  Receipt Date: 20090319
  Transmission Date: 20091009
  Serious: Yes (Other)
  Sender: FDA-Public Use
  Company Number: FR-PFIZER INC-2009186978

PATIENT

DRUGS (12)
  1. BLINDED *PLACEBO [Suspect]
     Indication: CARDIAC FAILURE
     Dosage: UNK
     Route: 048
     Dates: start: 20080104
  2. BLINDED EPLERENONE [Suspect]
     Indication: CARDIAC FAILURE
     Dosage: UNK
     Route: 048
     Dates: start: 20080104
  3. TAHOR [Concomitant]
     Dosage: UNK
  4. RAMIPRIL [Concomitant]
     Dosage: UNK
  5. BISOPROLOL FUMARATE [Concomitant]
     Dosage: UNK
  6. FUROSEMIDE [Concomitant]
     Dosage: UNK
  7. ASPEGIC 1000 [Concomitant]
     Dosage: UNK
  8. ATEPADENE [Concomitant]
  9. SKENAN [Concomitant]
  10. ACTISKENAN [Concomitant]
  11. DAFALGAN [Concomitant]
  12. PROPOFAN [Concomitant]

REACTIONS (1)
  - LUNG NEOPLASM MALIGNANT [None]
